FAERS Safety Report 23947198 (Version 1)
Quarter: 2024Q2

REPORT INFORMATION
  Report Type: Spontaneous
  Country: US (occurrence: None)
  Receive Date: 20240606
  Receipt Date: 20240606
  Transmission Date: 20240716
  Serious: Yes (Other)
  Sender: FDA-Public Use
  Company Number: 2024A126196

PATIENT
  Sex: Male

DRUGS (3)
  1. BRILINTA [Suspect]
     Active Substance: TICAGRELOR
     Indication: Myocardial infarction
     Route: 048
     Dates: start: 2016
  2. BRILINTA [Suspect]
     Active Substance: TICAGRELOR
     Indication: Cerebrovascular accident
     Route: 048
     Dates: start: 2016
  3. BRILINTA [Suspect]
     Active Substance: TICAGRELOR
     Indication: Stent placement
     Route: 048
     Dates: start: 2016

REACTIONS (8)
  - Neoplasm [Unknown]
  - Heart rate irregular [Unknown]
  - Fatigue [Unknown]
  - Breath odour [Unknown]
  - Tooth disorder [Unknown]
  - Dyspnoea [Unknown]
  - Feeling abnormal [Unknown]
  - Intentional dose omission [Unknown]
